FAERS Safety Report 8396841-9 (Version None)
Quarter: 2012Q2

REPORT INFORMATION
  Report Type: 
  Country: None (occurrence: None)
  Receive Date: 20120530
  Receipt Date: 20120521
  Transmission Date: 20120825
  Serious: Yes (Life-Threatening, Hospitalization)
  Sender: FDA-Public Use
  Company Number: GB-PFIZER INC-2012119754

PATIENT
  Age: 56 Year
  Sex: Female
  Weight: 60 kg

DRUGS (14)
  1. RAMIPRIL [Concomitant]
     Indication: BLOOD PRESSURE
     Dosage: 10 MG, 1X/DAY
     Dates: start: 20090612
  2. NAPROXEN [Concomitant]
     Dosage: 500 MG, 2X/DAY
     Dates: start: 20100504
  3. SULFASALAZINE [Suspect]
     Indication: RHEUMATOID ARTHRITIS
     Dosage: 1 G, 2X/DAY
     Route: 048
     Dates: start: 20120216, end: 20120325
  4. DICLOFENAC SODIUM [Concomitant]
     Dates: start: 20111128
  5. DIHYDROCODEINE BITARTRATE INJ [Concomitant]
     Dosage: 30MG, ONE  OR TWO EVERY 4 TO 6 HOURS
     Dates: start: 20120207
  6. ALPHOSYL HC [Concomitant]
     Dosage: UNK
     Dates: start: 20070720
  7. NICOTINE [Concomitant]
     Dosage: UNK
     Dates: start: 20110727
  8. OMEPRAZOLE [Concomitant]
     Dates: start: 20111117
  9. PREDNISOLONE [Concomitant]
     Dosage: 20 MG, 1X/DAY
     Dates: start: 20111215
  10. RAMIPRIL [Concomitant]
     Dosage: 10 MG, 1X/DAY
     Dates: start: 20090909
  11. SIMVASTATIN [Concomitant]
     Indication: HYPERCHOLESTEROLAEMIA
     Dosage: AT NIGHT
     Dates: start: 20100804
  12. ACETAMINOPHEN AND CODEINE PHOSPHATE [Concomitant]
     Indication: PAIN
     Dosage: 30MG/500MG, ONE OR TWO TAKEN FOUR TIMES A DAY WHEN REQUIRED
     Dates: start: 20040519
  13. SODIUM CHLORIDE [Concomitant]
     Dosage: 0.9 %, UNK
     Dates: start: 20120419
  14. CODEINE PHOSPHATE [Concomitant]
     Dosage: 30MG, ONE OR TWO TABLETS FOUR TIMES DAILY
     Dates: start: 20111130

REACTIONS (2)
  - NEUTROPENIA [None]
  - SEPSIS [None]
